FAERS Safety Report 8613624-2 (Version None)
Quarter: 2012Q3

REPORT INFORMATION
  Report Type: 
  Country: None (occurrence: None)
  Receive Date: 20120823
  Receipt Date: 20120809
  Transmission Date: 20120928
  Serious: Yes (Hospitalization)
  Sender: FDA-Public Use
  Company Number: JP-009507513-2012SP021996

PATIENT

DRUGS (10)
  1. PEGINTERFERON ALFA-2B [Suspect]
     Dosage: 1.28 MICROGRAM PER KILOGRAM, QW
     Route: 058
     Dates: start: 20120319, end: 20120401
  2. ALLOPURINOL [Concomitant]
     Indication: HYPERURICAEMIA
     Dosage: 200 MG, QD FORM POR
     Route: 048
  3. TELAVIC [Suspect]
     Dosage: 1500 MG, QD
     Route: 048
     Dates: start: 20120319, end: 20120401
  4. REBETOL [Suspect]
     Dosage: 600 MG, QD
     Route: 048
     Dates: end: 20120401
  5. REBETOL [Suspect]
     Dosage: 600 MG, QD
     Route: 048
     Dates: start: 20120313, end: 20120318
  6. REBETOL [Suspect]
     Dosage: 400 MG, QD
     Route: 048
     Dates: start: 20120319
  7. PEGINTERFERON ALFA-2B [Suspect]
     Indication: HEPATITIS C
     Dosage: 1.6 MICROGRAM PER KILOGRAM, QW
     Route: 058
     Dates: start: 20120221, end: 20120318
  8. REBETOL [Suspect]
     Indication: HEPATITIS C
     Dosage: 800 MG, QD
     Route: 048
     Dates: start: 20120221, end: 20120312
  9. TELAVIC [Suspect]
     Indication: HEPATITIS C
     Dosage: 2250 MG, QD
     Route: 048
     Dates: start: 20120221, end: 20120318
  10. XYZAL [Concomitant]
     Indication: PROPHYLAXIS
     Dosage: 5 MG, QD, FORM POR
     Route: 048
     Dates: start: 20120221

REACTIONS (1)
  - URINARY BLADDER HAEMORRHAGE [None]
